FAERS Safety Report 5367199-4 (Version None)
Quarter: 2007Q2

REPORT INFORMATION
  Report Type: 
  Country: None (occurrence: None)
  Receive Date: 20070620
  Receipt Date: 20070620
  Transmission Date: 20071010
  Serious: Yes (Hospitalization)
  Sender: FDA-Public Use
  Company Number: None

PATIENT
  Age: 87 Year
  Sex: Male

DRUGS (2)
  1. CARVEDILOL [Suspect]
     Indication: CARDIAC FAILURE CONGESTIVE
     Dosage: 50 MG BID PO
     Route: 048
     Dates: start: 20070601
  2. FELODIPINE [Suspect]
     Dosage: 5MG EVERY DAY PO
     Route: 048

REACTIONS (2)
  - ATRIOVENTRICULAR BLOCK [None]
  - NODAL RHYTHM [None]
